FAERS Safety Report 7582194-2 (Version None)
Quarter: 2011Q2

REPORT INFORMATION
  Report Type: 
  Country: None (occurrence: None)
  Receive Date: 20110630
  Receipt Date: 20110622
  Transmission Date: 20111010
  Serious: Yes (Other)
  Sender: FDA-Public Use
  Company Number: AR-AMGEN-ARGSP2011026952

PATIENT
  Age: 52 Year
  Sex: Female
  Weight: 60 kg

DRUGS (2)
  1. ENBREL [Suspect]
     Indication: RHEUMATOID ARTHRITIS
     Dosage: 25 MG, 2X/WEEK
     Route: 058
     Dates: start: 20050601
  2. OMEPRAZOLE [Concomitant]
     Dosage: UNK

REACTIONS (3)
  - NEPHROLITHIASIS [None]
  - RENAL CYST [None]
  - GALLBLADDER POLYP [None]
